FAERS Safety Report 6999709-5 (Version None)
Quarter: 2010Q3

REPORT INFORMATION
  Report Type: 
  Country: None (occurrence: None)
  Receive Date: 20100920
  Receipt Date: 20070906
  Transmission Date: 20110219
  Serious: Yes (Other)
  Sender: FDA-Public Use
  Company Number: US-ASTRAZENECA-2006UW26334

PATIENT
  Age: 50 Year
  Sex: Female
  Weight: 88 kg

DRUGS (9)
  1. SEROQUEL [Suspect]
     Indication: BIPOLAR DISORDER
     Route: 048
     Dates: start: 20020101
  2. SEROQUEL [Suspect]
     Indication: DEPRESSION
     Route: 048
     Dates: start: 20020101
  3. SEROQUEL [Suspect]
     Indication: SCHIZOPHRENIA
     Route: 048
     Dates: start: 20020101
  4. SEROQUEL [Suspect]
     Route: 048
     Dates: start: 20030808
  5. SEROQUEL [Suspect]
     Route: 048
     Dates: start: 20030808
  6. SEROQUEL [Suspect]
     Route: 048
     Dates: start: 20030808
  7. LEXAPRO [Concomitant]
  8. DEPAKOTE [Concomitant]
     Dosage: 500 MG IN MORNING AND 750 MG AT NIGHT
     Dates: start: 20030101
  9. PRILOSEC [Concomitant]
     Dates: start: 20030808

REACTIONS (2)
  - DIABETES MELLITUS [None]
  - SUICIDAL IDEATION [None]
